FAERS Safety Report 6617402-5 (Version None)
Quarter: 2010Q1

REPORT INFORMATION
  Report Type: 
  Country: None (occurrence: None)
  Receive Date: 20100307
  Receipt Date: 20100223
  Transmission Date: 20100710
  Serious: Yes (Other)
  Sender: FDA-Public Use
  Company Number: CN-BAYER-201016893GPV

PATIENT
  Age: 72 Year
  Sex: Female

DRUGS (1)
  1. ULTRAVIST 300 [Suspect]
     Indication: SCAN WITH CONTRAST
     Dosage: TOTAL DAILY DOSE: 100 ML
     Route: 042

REACTIONS (2)
  - CHILLS [None]
  - DELIRIUM [None]
